FAERS Safety Report 24717613 (Version 1)
Quarter: 2024Q4

REPORT INFORMATION
  Report Type: Spontaneous
  Country: US (occurrence: None)
  Receive Date: 20241210
  Receipt Date: 20241210
  Transmission Date: 20250115
  Serious: Yes (Hospitalization)
  Sender: Public
  Company Number: None

PATIENT
  Sex: Female

DRUGS (10)
  1. LENALIDOMIDE [Suspect]
     Active Substance: LENALIDOMIDE
     Indication: Plasma cell myeloma
     Dosage: FREQ: TAKE 1 CAPSULE BY MOUTH DAILY FOR 3 WEEKS ON, THEN 1 WEEK OFF?
     Route: 048
     Dates: start: 20241008
  2. AMITIZA [Concomitant]
     Active Substance: LUBIPROSTONE
  3. DARZALEX [Concomitant]
     Active Substance: DARATUMUMAB
  4. DEXAMETHASONE [Concomitant]
     Active Substance: DEXAMETHASONE
  5. ACETAMINOPHEN\HYDROCODONE [Concomitant]
     Active Substance: ACETAMINOPHEN\HYDROCODONE
  6. IBUPROFEN [Concomitant]
     Active Substance: IBUPROFEN
  7. LASIX [Concomitant]
     Active Substance: FUROSEMIDE
  8. PAMIDRONATE [Concomitant]
     Active Substance: PAMIDRONATE DISODIUM
  9. VELCADE [Concomitant]
     Active Substance: BORTEZOMIB
  10. ZOLOFT [Concomitant]
     Active Substance: SERTRALINE HYDROCHLORIDE

REACTIONS (2)
  - Hospitalisation [None]
  - Intentional dose omission [None]
